FAERS Safety Report 15991538 (Version 1)
Quarter: 2019Q1

REPORT INFORMATION
  Report Type: Spontaneous
  Country: US (occurrence: US)
  Receive Date: 20190221
  Receipt Date: 20190221
  Transmission Date: 20190418
  Serious: Yes (Other)
  Sender: FDA-Public Use
  Company Number: US-PFIZER INC-2019074201

PATIENT

DRUGS (8)
  1. NEXIUM [Suspect]
     Active Substance: ESOMEPRAZOLE MAGNESIUM
     Dosage: UNK (FOR MULTIPLE AND VARIOUS YEARS)
  2. PREVACID 24 HR [Suspect]
     Active Substance: LANSOPRAZOLE
     Dosage: UNK (FOR MULTIPLE AND VARIOUS YEARS)
  3. PRILOSEC OTC [Suspect]
     Active Substance: OMEPRAZOLE MAGNESIUM
     Dosage: UNK (FOR MULTIPLE AND VARIOUS YEARS)
  4. DEXILANT [Suspect]
     Active Substance: DEXLANSOPRAZOLE
     Dosage: UNK (FOR MULTIPLE AND VARIOUS YEARS)
  5. NEXIUM 24HR [Suspect]
     Active Substance: ESOMEPRAZOLE MAGNESIUM
     Dosage: UNK (FOR MULTIPLE AND VARIOUS YEARS)
  6. PROTONIX [Suspect]
     Active Substance: PANTOPRAZOLE SODIUM
     Dosage: UNK (FOR MULTIPLE AND VARIOUS YEARS)
  7. PRILOSEC [Suspect]
     Active Substance: OMEPRAZOLE MAGNESIUM
     Dosage: UNK (FOR MULTIPLE AND VARIOUS YEARS)
  8. PREVACID [Suspect]
     Active Substance: LANSOPRAZOLE
     Dosage: UNK (FOR MULTIPLE AND VARIOUS YEARS)

REACTIONS (2)
  - Renal failure [Unknown]
  - Renal injury [Unknown]
